FAERS Safety Report 4852746-9 (Version None)
Quarter: 2005Q4

REPORT INFORMATION
  Report Type: 
  Country: None (occurrence: None)
  Receive Date: 20051125
  Receipt Date: 20050526
  Transmission Date: 20060501
  Serious: Yes (Other)
  Sender: FDA-Public Use
  Company Number: 2005054818

PATIENT
  Sex: Male
  Weight: 90.7194 kg

DRUGS (9)
  1. TIKOSYN [Suspect]
     Indication: ATRIAL FIBRILLATION
     Dosage: 1000 MCG (500 MCG,BID),ORAL
     Route: 048
     Dates: start: 20050203
  2. LINSEED OIL (LINSEED OIL) [Concomitant]
  3. MAGNESIUM (MAGNESIUM) [Concomitant]
  4. ROYAL JELLY (ROYAL JELLY) [Concomitant]
  5. CYANOCOBALAMIN (CYCANOCOBALAMIN) [Concomitant]
  6. WARFARIN SODIUM [Concomitant]
  7. ASPIRIN [Concomitant]
  8. EZETIMIBE/SIMVASTATIN (EZETIMIBE, SIMVASTATIN) [Concomitant]
  9. METOPROLOL TARTRATE [Concomitant]

REACTIONS (3)
  - ACCIDENTAL OVERDOSE [None]
  - ATRIAL FIBRILLATION [None]
  - SOMNOLENCE [None]
